FAERS Safety Report 25526025 (Version 1)
Quarter: 2025Q3

REPORT INFORMATION
  Report Type: Report from Study
  Country: US (occurrence: US)
  Receive Date: 20250707
  Receipt Date: 20250707
  Transmission Date: 20251020
  Serious: Yes (Other)
  Sender: TG THERAPEUTICS
  Company Number: US-TG THERAPEUTICS INC.-TGT005444

PATIENT

DRUGS (3)
  1. UBLITUXIMAB [Suspect]
     Active Substance: UBLITUXIMAB
     Indication: Multiple sclerosis
     Route: 042
     Dates: start: 20231128, end: 20231128
  2. UBLITUXIMAB [Suspect]
     Active Substance: UBLITUXIMAB
     Route: 042
     Dates: start: 20250211, end: 20250211
  3. KETAMINE [Concomitant]
     Active Substance: KETAMINE
     Indication: Product used for unknown indication

REACTIONS (33)
  - Disability [Unknown]
  - Dysphemia [Unknown]
  - Fall [Unknown]
  - Anxiety [Unknown]
  - Urinary incontinence [Unknown]
  - Cognitive disorder [Unknown]
  - Eye disorder [Unknown]
  - Brain fog [Unknown]
  - Visual impairment [Unknown]
  - Vomiting [Unknown]
  - Obsessive-compulsive disorder [Unknown]
  - Diarrhoea [Unknown]
  - Crying [Unknown]
  - Disturbance in attention [Unknown]
  - Foreign body sensation in eyes [Unknown]
  - Dyskinesia [Unknown]
  - Amnesia [Unknown]
  - Migraine [Unknown]
  - Dry eye [Unknown]
  - Aphasia [Unknown]
  - Eye pain [Unknown]
  - Multiple sclerosis relapse [Unknown]
  - Feeling abnormal [Unknown]
  - Dyspepsia [Unknown]
  - Condition aggravated [Unknown]
  - Impaired driving ability [Unknown]
  - Rash macular [Unknown]
  - Hypoaesthesia [Unknown]
  - Multiple sclerosis [Unknown]
  - Chest discomfort [Unknown]
  - Dysstasia [Unknown]
  - Migraine [Unknown]
  - Drug ineffective [Unknown]
